FAERS Safety Report 23150308 (Version 1)
Quarter: 2023Q4

REPORT INFORMATION
  Report Type: Report from Study
  Country: US (occurrence: US)
  Receive Date: 20231106
  Receipt Date: 20231106
  Transmission Date: 20240109
  Serious: Yes (Other)
  Sender: FDA-Public Use
  Company Number: US-002147023-NVSC2023US233935

PATIENT
  Sex: Male

DRUGS (1)
  1. ILARIS [Suspect]
     Active Substance: CANAKINUMAB
     Indication: Still^s disease
     Dosage: 50 MG (EVERY 21 DAYS)
     Route: 058
     Dates: start: 20220926

REACTIONS (3)
  - Juvenile idiopathic arthritis [Unknown]
  - Pain [Unknown]
  - Product availability issue [Unknown]
